FAERS Safety Report 5669525-5 (Version None)
Quarter: 2008Q1

REPORT INFORMATION
  Report Type: 
  Country: None (occurrence: None)
  Receive Date: 20080312
  Receipt Date: 20080312
  Transmission Date: 20080703
  Serious: No
  Sender: FDA-Public Use
  Company Number: None

PATIENT
  Age: 69 Year
  Sex: Male
  Weight: 90.72 kg

DRUGS (1)
  1. DAPTOMYCIN [Suspect]
     Indication: STREPTOCOCCAL INFECTION
     Dosage: 600 MG Q24HRS IV
     Route: 042

REACTIONS (1)
  - EOSINOPHILIC PNEUMONIA [None]
